FAERS Safety Report 4647294-5 (Version None)
Quarter: 2005Q2

REPORT INFORMATION
  Report Type: 
  Country: None (occurrence: None)
  Receive Date: 20050428
  Receipt Date: 20050426
  Transmission Date: 20051028
  Serious: Yes (Hospitalization, Other)
  Sender: FDA-Public Use
  Company Number: BR-JNJFOC-20050406165

PATIENT
  Age: 42 Year
  Sex: Male

DRUGS (2)
  1. CLADRIBINE [Suspect]
     Route: 042
  2. INTERFERON [Concomitant]

REACTIONS (1)
  - ATRIOVENTRICULAR BLOCK COMPLETE [None]
